FAERS Safety Report 6307757-3 (Version None)
Quarter: 2009Q3

REPORT INFORMATION
  Report Type: 
  Country: None (occurrence: None)
  Receive Date: 20090812
  Receipt Date: 20090812
  Transmission Date: 20100115
  Serious: Yes (Hospitalization)
  Sender: FDA-Public Use
  Company Number: None

PATIENT
  Sex: Female
  Weight: 63.5036 kg

DRUGS (1)
  1. ACTONEL [Suspect]
     Indication: OSTEOPENIA
     Dosage: ONE TABLET ONCE A MONTH PO
     Route: 048
     Dates: start: 20090808, end: 20090808

REACTIONS (7)
  - BACK PAIN [None]
  - BODY TEMPERATURE INCREASED [None]
  - CHEST PAIN [None]
  - DIARRHOEA [None]
  - MOVEMENT DISORDER [None]
  - MUSCULOSKELETAL PAIN [None]
  - VISION BLURRED [None]
